FAERS Safety Report 19256835 (Version 5)
Quarter: 2021Q4

REPORT INFORMATION
  Report Type: Report from Study
  Country: CA (occurrence: CA)
  Receive Date: 20210513
  Receipt Date: 20211115
  Transmission Date: 20220303
  Serious: Yes (Other)
  Sender: FDA-Public Use
  Company Number: CA-TAKEDA-2021TUS012439

PATIENT
  Age: 32 Year
  Sex: Female
  Weight: 62 kg

DRUGS (11)
  1. VEDOLIZUMAB [Suspect]
     Active Substance: VEDOLIZUMAB
     Indication: Colitis ulcerative
     Dosage: 300 MILLIGRAM
     Route: 042
     Dates: start: 20210129
  2. VEDOLIZUMAB [Suspect]
     Active Substance: VEDOLIZUMAB
     Dosage: 300 MILLIGRAM, Q4WEEKS
     Route: 042
     Dates: start: 20210604, end: 20210604
  3. ZOLOFT [Concomitant]
     Active Substance: SERTRALINE HYDROCHLORIDE
     Dosage: UNK
     Dates: start: 20210118
  4. Cortiment [Concomitant]
     Dosage: UNK
     Dates: start: 20210118
  5. Cortimax [Concomitant]
     Dosage: UNK
     Dates: start: 202101, end: 202102
  6. MONOFERRIC [Concomitant]
     Active Substance: FERRIC DERISOMALTOSE
     Dosage: UNK
  7. PREDNISONE [Concomitant]
     Active Substance: PREDNISONE
     Dosage: UNK
  8. PENTASA [Concomitant]
     Active Substance: MESALAMINE
  9. INFLIXIMAB [Concomitant]
     Active Substance: INFLIXIMAB
     Dosage: 5 MILLIGRAM
     Route: 042
     Dates: start: 20210708
  10. INFLIXIMAB [Concomitant]
     Active Substance: INFLIXIMAB
     Dosage: 5 MILLIGRAM
     Route: 042
     Dates: start: 20210722
  11. INFLIXIMAB [Concomitant]
     Active Substance: INFLIXIMAB
     Dosage: 5 MILLIGRAM
     Route: 042
     Dates: start: 20210819

REACTIONS (6)
  - Crohn^s disease [Not Recovered/Not Resolved]
  - Gastrointestinal sounds abnormal [Unknown]
  - Abdominal pain upper [Unknown]
  - Abdominal distension [Unknown]
  - Treatment failure [Unknown]
  - Off label use [Unknown]

NARRATIVE: CASE EVENT DATE: 20210604
